FAERS Safety Report 18269312 (Version 1)
Quarter: 2020Q3

REPORT INFORMATION
  Report Type: Spontaneous
  Country: FR (occurrence: FR)
  Receive Date: 20200915
  Receipt Date: 20200915
  Transmission Date: 20201103
  Serious: Yes (Hospitalization)
  Sender: FDA-Public Use
  Company Number: FR-JAZZ-2020-FR-004741

PATIENT

DRUGS (3)
  1. KIDROLASE [Suspect]
     Active Substance: ASPARAGINASE
     Indication: LEUKAEMIA
     Dosage: 4740 INTERNATIONAL UNIT
     Route: 042
     Dates: start: 20190731, end: 20190731
  2. SOLUPRED [PREDNISOLONE METASULFOBENZOATE SODIUM] [Suspect]
     Active Substance: PREDNISOLONE SODIUM METAZOATE
     Indication: LEUKAEMIA
     Dosage: 45 MILLIGRAM
     Route: 065
     Dates: start: 20190712, end: 20190726
  3. DEXAMETHASONE. [Suspect]
     Active Substance: DEXAMETHASONE
     Indication: LEUKAEMIA
     Dosage: 4.8 MILLIGRAM
     Route: 042
     Dates: start: 20190727, end: 20190801

REACTIONS (1)
  - Hyperglycaemia [Recovered/Resolved]

NARRATIVE: CASE EVENT DATE: 20190801
